FAERS Safety Report 6179834-1 (Version None)
Quarter: 2009Q2

REPORT INFORMATION
  Report Type: 
  Country: None (occurrence: None)
  Receive Date: 20090501
  Receipt Date: 20090424
  Transmission Date: 20091009
  Serious: Yes (Other)
  Sender: FDA-Public Use
  Company Number: 193099USA

PATIENT
  Age: 38 Year
  Sex: Female
  Weight: 70.3075 kg

DRUGS (1)
  1. ADDERALL 10 [Suspect]
     Indication: NARCOLEPSY
     Dosage: 30 MG FOUR TIMES DAIILY, ORAL
     Route: 048
     Dates: start: 20020101

REACTIONS (6)
  - CHEST DISCOMFORT [None]
  - CHEST PAIN [None]
  - DRUG EFFECT DECREASED [None]
  - DYSPNOEA [None]
  - PRODUCT SUBSTITUTION ISSUE [None]
  - THROAT IRRITATION [None]
